FAERS Safety Report 6636010-3 (Version None)
Quarter: 2010Q1

REPORT INFORMATION
  Report Type: 
  Country: None (occurrence: None)
  Receive Date: 20100311
  Receipt Date: 20100308
  Transmission Date: 20100710
  Serious: Yes (Death)
  Sender: FDA-Public Use
  Company Number: WAES 1003USA01018

PATIENT
  Age: 58 Year
  Sex: Male

DRUGS (12)
  1. ISENTRESS [Suspect]
     Indication: HIV INFECTION
     Dosage: /DAILYIPO
     Route: 048
     Dates: start: 20091008, end: 20100303
  2. ALDARA [Concomitant]
  3. IMODIUM [Concomitant]
  4. INTELENCE [Concomitant]
  5. NORVIR [Concomitant]
  6. PREZISTA [Concomitant]
  7. PROCTOSOL-HC CREAM [Concomitant]
  8. VIAGRA [Concomitant]
  9. XANAX [Concomitant]
  10. CLOBETASOL PROPIONATE [Concomitant]
  11. OXYCODONE [Concomitant]
  12. LIDEX [Concomitant]

REACTIONS (1)
  - ACUTE CORONARY SYNDROME [None]
